FAERS Safety Report 17762775 (Version 1)
Quarter: 2020Q2

REPORT INFORMATION
  Report Type: Report from Study
  Country: IN (occurrence: IN)
  Receive Date: 20200508
  Receipt Date: 20200508
  Transmission Date: 20200714
  Serious: Yes (Other)
  Sender: FDA-Public Use
  Company Number: NVSC2020IN072398

PATIENT
  Age: 67 Year
  Sex: Female
  Weight: 84 kg

DRUGS (4)
  1. CYRA D [Concomitant]
     Indication: PRODUCT USED FOR UNKNOWN INDICATION
     Dosage: 1 DF, QD
     Route: 048
  2. GALVUS MET [Suspect]
     Active Substance: METFORMIN HYDROCHLORIDE\VILDAGLIPTIN
     Indication: DIABETES MELLITUS
     Dosage: 1 DF (50/1000), BID
     Route: 048
     Dates: start: 202001
  3. AVAS [Concomitant]
     Indication: PRODUCT USED FOR UNKNOWN INDICATION
     Dosage: 1 DF (10), QD
     Route: 048
  4. GLIMY-M [Concomitant]
     Indication: DIABETES MELLITUS
     Dosage: 1 DF, BID
     Route: 048

REACTIONS (9)
  - Blood bilirubin increased [Unknown]
  - Nausea [Unknown]
  - Dyspepsia [Unknown]
  - Gastric pH decreased [Unknown]
  - Fatigue [Unknown]
  - Weight abnormal [Unknown]
  - Dyspnoea [Unknown]
  - Hyperglycaemia [Unknown]
  - Constipation [Unknown]

NARRATIVE: CASE EVENT DATE: 20200225
